FAERS Safety Report 25600942 (Version 1)
Quarter: 2025Q3

REPORT INFORMATION
  Report Type: Spontaneous
  Country: US (occurrence: US)
  Receive Date: 20250724
  Receipt Date: 20250724
  Transmission Date: 20251020
  Serious: Yes (Hospitalization)
  Sender: MYLAN
  Company Number: US-MYLANLABS-2025M1061315

PATIENT
  Age: 38 Year
  Sex: Female

DRUGS (20)
  1. EVEROLIMUS [Suspect]
     Active Substance: EVEROLIMUS
     Indication: Meningioma
  2. EVEROLIMUS [Suspect]
     Active Substance: EVEROLIMUS
     Route: 065
  3. EVEROLIMUS [Suspect]
     Active Substance: EVEROLIMUS
     Route: 065
  4. EVEROLIMUS [Suspect]
     Active Substance: EVEROLIMUS
  5. VALPROATE [Suspect]
     Active Substance: VALPROIC ACID
     Indication: Meningioma
  6. VALPROATE [Suspect]
     Active Substance: VALPROIC ACID
     Route: 065
  7. VALPROATE [Suspect]
     Active Substance: VALPROIC ACID
     Route: 065
  8. VALPROATE [Suspect]
     Active Substance: VALPROIC ACID
  9. BEVACIZUMAB [Suspect]
     Active Substance: BEVACIZUMAB
     Indication: Meningioma
  10. BEVACIZUMAB [Suspect]
     Active Substance: BEVACIZUMAB
     Route: 065
  11. BEVACIZUMAB [Suspect]
     Active Substance: BEVACIZUMAB
     Route: 065
  12. BEVACIZUMAB [Suspect]
     Active Substance: BEVACIZUMAB
  13. ABEMACICLIB [Interacting]
     Active Substance: ABEMACICLIB
     Indication: Meningioma
     Dosage: 200 MILLIGRAM, BID
  14. ABEMACICLIB [Interacting]
     Active Substance: ABEMACICLIB
     Dosage: 200 MILLIGRAM, BID
     Route: 065
  15. ABEMACICLIB [Interacting]
     Active Substance: ABEMACICLIB
     Dosage: 200 MILLIGRAM, BID
     Route: 065
  16. ABEMACICLIB [Interacting]
     Active Substance: ABEMACICLIB
     Dosage: 200 MILLIGRAM, BID
  17. CHLOROQUINE [Interacting]
     Active Substance: CHLOROQUINE
     Indication: Meningioma
     Dosage: 250 MILLIGRAM, QD
  18. CHLOROQUINE [Interacting]
     Active Substance: CHLOROQUINE
     Dosage: 250 MILLIGRAM, QD
     Route: 065
  19. CHLOROQUINE [Interacting]
     Active Substance: CHLOROQUINE
     Dosage: 250 MILLIGRAM, QD
     Route: 065
  20. CHLOROQUINE [Interacting]
     Active Substance: CHLOROQUINE
     Dosage: 250 MILLIGRAM, QD

REACTIONS (4)
  - Drug ineffective for unapproved indication [Unknown]
  - Disease progression [Unknown]
  - Alopecia [Unknown]
  - Off label use [Unknown]
